FAERS Safety Report 11554662 (Version 1)
Quarter: 2015Q3

REPORT INFORMATION
  Report Type: Spontaneous
  Country: FR (occurrence: FR)
  Receive Date: 20150925
  Receipt Date: 20150925
  Transmission Date: 20151125
  Serious: Yes (Other)
  Sender: FDA-Public Use
  Company Number: FR-CORCEPT THERAPEUTICS INC.-FR-2015CRT000604

PATIENT
  Age: 34 Year
  Sex: Female

DRUGS (2)
  1. MIFEPRISTONE [Suspect]
     Active Substance: MIFEPRISTONE
     Indication: ABORTION INDUCED
     Dosage: 600 MG, QD
     Route: 048
     Dates: start: 20111021, end: 20111021
  2. CYTOTEC [Suspect]
     Active Substance: MISOPROSTOL
     Indication: ABORTION INDUCED
     Dosage: 400 ?G, QD
     Route: 060
     Dates: start: 20111024, end: 20111024

REACTIONS (11)
  - Fall [None]
  - Abortion induced incomplete [Recovered/Resolved]
  - Spinal fracture [None]
  - Head injury [None]
  - Presyncope [Unknown]
  - Product use issue [Unknown]
  - Inappropriate schedule of drug administration [Unknown]
  - Pain [Unknown]
  - Vaginal haemorrhage [Recovered/Resolved]
  - Loss of consciousness [None]
  - Incorrect route of drug administration [Unknown]

NARRATIVE: CASE EVENT DATE: 20111110
